FAERS Safety Report 4319714-7 (Version None)
Quarter: 2004Q1

REPORT INFORMATION
  Report Type: 
  Country: None (occurrence: None)
  Receive Date: 20040316
  Receipt Date: 20040301
  Transmission Date: 20041129
  Serious: Yes (Hospitalization)
  Sender: FDA-Public Use
  Company Number: F03200400016

PATIENT
  Age: 34 Year
  Sex: Male

DRUGS (8)
  1. OXALIPLATIN -SOLUTION- [Suspect]
     Indication: COLON CANCER
     Dosage: 85 MG/M2 QW - INTRAVENOUS NOS
     Route: 042
     Dates: start: 20031215, end: 20031215
  2. BEVACIZUMAB [Suspect]
     Indication: COLON CANCER
     Dates: start: 20031215, end: 20031215
  3. XELODA [Suspect]
     Indication: COLON CANCER
     Dosage: 100 MG/M2 BID
     Dates: start: 20031226, end: 20031226
  4. PAROXETINE HCL [Concomitant]
  5. PANTOPRAZOLE SODIUM [Concomitant]
  6. OXYCODONE HCL [Concomitant]
  7. DICYCLOMINE HYDROCHLORIDE [Concomitant]
  8. ONDANSETRON HCL [Concomitant]

REACTIONS (2)
  - ABDOMINAL HERNIA [None]
  - WOUND DEHISCENCE [None]
